FAERS Safety Report 5360371-9 (Version None)
Quarter: 2007Q2

REPORT INFORMATION
  Report Type: 
  Country: None (occurrence: None)
  Receive Date: 20070614
  Receipt Date: 20070601
  Transmission Date: 20071010
  Serious: Yes (Hospitalization)
  Sender: FDA-Public Use
  Company Number: T200700638

PATIENT
  Age: 83 Year
  Sex: Female
  Weight: 84 kg

DRUGS (12)
  1. OPTIRAY 350 [Suspect]
     Indication: PERCUTANEOUS CORONARY INTERVENTION
     Dosage: 150 ML, INTRA-ARTERIAL
     Route: 013
     Dates: start: 20070404, end: 20070404
  2. CANGRELOR VS PLACEBO (CANGRELOR VS PLACEBO) INJECTION [Suspect]
     Dosage: SEE IMAGE
     Route: 040
     Dates: start: 20070404, end: 20070504
  3. CLOPIDOGREL VS PLACEBO (CLOPIDOGREL VS PLACEBO) CAPSULE [Concomitant]
     Dosage: SEE IMAGE
     Route: 048
     Dates: start: 20070404, end: 20070404
  4. ENALAPRILAT (ENALAPRILAT) [Concomitant]
  5. MIDAZOLAM HCL [Concomitant]
  6. MORPHINE SULFATE [Concomitant]
  7. PROCHLORPERAZINE MALEATE [Concomitant]
  8. NITROGLYCERIN [Concomitant]
  9. DIPHENHYDRAMINE HCL [Concomitant]
  10. FUROSEMIDE [Concomitant]
  11. HYDROCORTISONE SODIUM SUCCINATE [Concomitant]
  12. HEPARIN [Concomitant]

REACTIONS (2)
  - CARDIAC FAILURE CONGESTIVE [None]
  - RENAL FAILURE ACUTE [None]
